FAERS Safety Report 14413958 (Version 1)
Quarter: 2018Q1

REPORT INFORMATION
  Report Type: Spontaneous
  Country: US (occurrence: US)
  Receive Date: 20180118
  Receipt Date: 20180118
  Transmission Date: 20180509
  Serious: No
  Sender: FDA-Public Use
  Company Number: None

PATIENT
  Age: 51 Year
  Sex: Female

DRUGS (1)
  1. IBRANCE [Suspect]
     Active Substance: PALBOCICLIB
     Indication: ILL-DEFINED DISORDER
     Dosage: DAILY FOR 21 DAYS OF 28 DAYS
     Route: 048
     Dates: start: 20171024

REACTIONS (1)
  - Gastric disorder [None]

NARRATIVE: CASE EVENT DATE: 20180101
